FAERS Safety Report 10531717 (Version 1)
Quarter: 2014Q4

REPORT INFORMATION
  Report Type: Report from Study
  Country: KR (occurrence: KR)
  Receive Date: 20141021
  Receipt Date: 20141021
  Transmission Date: 20150529
  Serious: Yes (Other)
  Sender: FDA-Public Use
  Company Number: KR-UCBSA-2014014546

PATIENT
  Age: 63 Year
  Sex: Male
  Weight: 58 kg

DRUGS (5)
  1. XANAX [Concomitant]
     Active Substance: ALPRAZOLAM
     Indication: ANXIETY
     Dosage: 0.25 MG, 3X/DAY (TID)
     Route: 048
     Dates: start: 20140416
  2. ROTIGOTINE [Suspect]
     Active Substance: ROTIGOTINE
     Indication: PARKINSON^S DISEASE
     Dosage: 2 MG, ONCE DAILY (QD)
     Route: 062
     Dates: start: 20141006, end: 20141006
  3. EXELON [Concomitant]
     Active Substance: RIVASTIGMINE TARTRATE
     Indication: DEMENTIA
     Dosage: 3 MG, 2X/DAY (BID)
     Route: 048
     Dates: start: 20140407
  4. ALBIS [Concomitant]
     Active Substance: BISMUTH SUBCITRATE\RANITIDINE HYDROCHLORIDE\SUCRALFATE
     Indication: GASTRITIS PROPHYLAXIS
     Dosage: 1 TABLET TWICE DAILY
     Route: 048
     Dates: start: 20140411
  5. DOMPERIDON [Concomitant]
     Active Substance: DOMPERIDONE
     Indication: GASTRITIS PROPHYLAXIS
     Dosage: 10 MG, 3X/DAY (TID)
     Route: 048
     Dates: start: 20140408

REACTIONS (1)
  - Mental disorder [Recovered/Resolved]

NARRATIVE: CASE EVENT DATE: 20141006
